FAERS Safety Report 9970070 (Version 2)
Quarter: 2015Q1

REPORT INFORMATION
  Report Type: Spontaneous
  Country: US (occurrence: None)
  Receive Date: 20140131
  Receipt Date: 20150129
  Transmission Date: 20150721
  Serious: Yes (Hospitalization, Disabling)
  Sender: FDA-Public Use
  Company Number: 095829

PATIENT
  Age: 31 Year
  Sex: Male
  Weight: 72.5 kg

DRUGS (3)
  1. CLONOPIN [Concomitant]
     Active Substance: CLONAZEPAM
  2. DEPAKOTE [Concomitant]
     Active Substance: DIVALPROEX SODIUM
  3. KEPPRA XR [Suspect]
     Active Substance: LEVETIRACETAM
     Indication: GENERALISED TONIC-CLONIC SEIZURE
     Dosage: STRENGTH

REACTIONS (4)
  - Overdose [None]
  - Inappropriate schedule of drug administration [None]
  - Drug ineffective [None]
  - Epilepsy [None]

NARRATIVE: CASE EVENT DATE: 201208
